FAERS Safety Report 15225561 (Version 1)
Quarter: 2018Q3

REPORT INFORMATION
  Report Type: Spontaneous
  Country: HK (occurrence: HK)
  Receive Date: 20180801
  Receipt Date: 20180801
  Transmission Date: 20181010
  Serious: Yes (Other)
  Sender: FDA-Public Use
  Company Number: HK-RICON PHARMA, LLC-RIC201807-000764

PATIENT
  Age: 58 Year
  Sex: Female

DRUGS (4)
  1. TRIAMCINOLONE ACETONIDE. [Suspect]
     Active Substance: TRIAMCINOLONE ACETONIDE
     Dosage: 1 ML OF 40 MG/ML
  2. OMNIPAQUE [Concomitant]
     Active Substance: IOHEXOL
  3. GABAPENTIN. [Suspect]
     Active Substance: GABAPENTIN
  4. ROPIVACAINE [Concomitant]
     Active Substance: ROPIVACAINE
     Indication: PAIN

REACTIONS (1)
  - Myoclonus [Recovered/Resolved]
